FAERS Safety Report 5454745-5 (Version None)
Quarter: 2007Q3

REPORT INFORMATION
  Report Type: 
  Country: None (occurrence: None)
  Receive Date: 20070917
  Receipt Date: 20060908
  Transmission Date: 20080115
  Serious: Yes (Hospitalization)
  Sender: FDA-Public Use
  Company Number: US-ASTRAZENECA-2006UW15728

PATIENT
  Sex: Male

DRUGS (2)
  1. SEROQUEL [Suspect]
     Indication: ANXIETY
     Route: 048
     Dates: start: 20060718, end: 20060718
  2. SEROQUEL [Suspect]
     Route: 048
     Dates: start: 20060721, end: 20060721

REACTIONS (2)
  - AGITATION [None]
  - HEART RATE INCREASED [None]
